FAERS Safety Report 16722620 (Version 1)
Quarter: 2019Q3

REPORT INFORMATION
  Report Type: Report from Study
  Country: US (occurrence: US)
  Receive Date: 20190820
  Receipt Date: 20190820
  Transmission Date: 20191005
  Serious: No
  Sender: FDA-Public Use
  Company Number: US-ALEXION PHARMACEUTICALS INC.-A201912258

PATIENT
  Age: 74 Year
  Sex: Male

DRUGS (1)
  1. SOLIRIS [Suspect]
     Active Substance: ECULIZUMAB
     Indication: MYASTHENIA GRAVIS
     Dosage: 1200 MG, Q2W
     Route: 042
     Dates: start: 20180423

REACTIONS (3)
  - Dyspnoea [Not Recovered/Not Resolved]
  - Atelectasis [Not Recovered/Not Resolved]
  - Splenomegaly [Not Recovered/Not Resolved]

NARRATIVE: CASE EVENT DATE: 20190802
